FAERS Safety Report 9093340 (Version 3)
Quarter: 2013Q2

REPORT INFORMATION
  Report Type: Report from Study
  Country: US (occurrence: US)
  Receive Date: 20130201
  Receipt Date: 20130522
  Transmission Date: 20140414
  Serious: Yes (Other)
  Sender: FDA-Public Use
  Company Number: PHEH2013US002643

PATIENT
  Sex: Female

DRUGS (1)
  1. AFINITOR [Suspect]
     Indication: CARCINOID SYNDROME
     Dosage: 7.5 MG, DAILY
     Route: 048
     Dates: start: 20121010

REACTIONS (3)
  - Fall [Unknown]
  - Hypoacusis [Unknown]
  - Tooth loss [Unknown]
